FAERS Safety Report 13382569 (Version 2)
Quarter: 2018Q1

REPORT INFORMATION
  Report Type: Report from Study
  Country: US (occurrence: US)
  Receive Date: 20170329
  Receipt Date: 20180227
  Transmission Date: 20180508
  Serious: No
  Sender: FDA-Public Use
  Company Number: PHHY2017US044055

PATIENT
  Age: 49 Year
  Sex: Female

DRUGS (1)
  1. GILENYA [Suspect]
     Active Substance: FINGOLIMOD HYDROCHLORIDE
     Indication: MULTIPLE SCLEROSIS
     Dosage: UNK, QD
     Route: 048

REACTIONS (5)
  - Fibrous histiocytoma [Unknown]
  - Disturbance in attention [Unknown]
  - Infection [Unknown]
  - Melanocytic naevus [Unknown]
  - Aversion [Unknown]

NARRATIVE: CASE EVENT DATE: 20170102
